FAERS Safety Report 18405204 (Version 1)
Quarter: 2020Q4

REPORT INFORMATION
  Report Type: Spontaneous
  Country: US (occurrence: US)
  Receive Date: 20201020
  Receipt Date: 20201020
  Transmission Date: 20210114
  Serious: Yes (Disabling, Other)
  Sender: FDA-Public Use
  Company Number: None

PATIENT
  Age: 42 Year
  Sex: Female
  Weight: 74.25 kg

DRUGS (10)
  1. PREBIOTIC [Concomitant]
  2. IBUPROFEN. [Concomitant]
     Active Substance: IBUPROFEN
  3. LORAZEPAM. [Concomitant]
     Active Substance: LORAZEPAM
  4. TYLENOL [Concomitant]
     Active Substance: ACETAMINOPHEN
  5. EMGALITY [Suspect]
     Active Substance: GALCANEZUMAB-GNLM
     Indication: MIGRAINE
     Dates: start: 20200505, end: 20200905
  6. ALPHA LIPOIC ACID [Concomitant]
     Active Substance: .ALPHA.-LIPOIC ACID
  7. PHENOBARBITAL. [Concomitant]
     Active Substance: PHENOBARBITAL
  8. TEGRETOL [Concomitant]
     Active Substance: CARBAMAZEPINE
  9. TUMERIC [Concomitant]
     Active Substance: HERBALS\TURMERIC
  10. PROMETHAZINE [Concomitant]
     Active Substance: PROMETHAZINE HYDROCHLORIDE

REACTIONS (8)
  - Joint swelling [None]
  - Suicidal ideation [None]
  - Musculoskeletal stiffness [None]
  - Anxiety [None]
  - Constipation [None]
  - Depression [None]
  - Pain [None]
  - Dysphonia [None]

NARRATIVE: CASE EVENT DATE: 20200623
